FAERS Safety Report 10209336 (Version 1)
Quarter: 2014Q2

REPORT INFORMATION
  Report Type: Not Available
  Country: US (occurrence: US)
  Receive Date: 20140531
  Receipt Date: 20140531
  Transmission Date: 20141212
  Serious: No
  Sender: FDA-Public Use
  Company Number: US-LUPIN PHARMACEUTICALS INC.-E2B_00002006

PATIENT
  Age: 73 Year
  Sex: Female
  Weight: 67.19 kg

DRUGS (1)
  1. IRBESARTAN AND HYDROCHLOROTHIAZIDE TABLET USP 150MG/12.5MG [Suspect]
     Indication: HYPERTENSION
     Dates: start: 20140326

REACTIONS (2)
  - Dizziness [Not Recovered/Not Resolved]
  - Blood pressure decreased [Not Recovered/Not Resolved]
